FAERS Safety Report 10672402 (Version 3)
Quarter: 2015Q1

REPORT INFORMATION
  Report Type: Spontaneous
  Country: AU (occurrence: AU)
  Receive Date: 20141223
  Receipt Date: 20150116
  Transmission Date: 20150720
  Serious: Yes (Other)
  Sender: FDA-Public Use
  Company Number: AU-PFIZER INC-2014334256

PATIENT
  Age: 64 Year
  Sex: Male

DRUGS (11)
  1. MONOPRIL [Concomitant]
     Active Substance: FOSINOPRIL SODIUM
     Dosage: 20 MG, DAILY
  2. NEXIUM [Concomitant]
     Active Substance: ESOMEPRAZOLE MAGNESIUM
     Dosage: 20 MG, DAILY
  3. THIAMINE [Concomitant]
     Active Substance: THIAMINE
     Dosage: 100 MG, DAILY
  4. FLECAINIDE [Concomitant]
     Active Substance: FLECAINIDE
     Dosage: 100 MG, 2X/DAY
  5. CARTIA XT [Concomitant]
     Active Substance: DILTIAZEM HYDROCHLORIDE
     Dosage: 100 MG, ALTERNATE DAY WITH FOOD
  6. STEMETIL [Concomitant]
     Active Substance: PROCHLORPERAZINE MALEATE
     Indication: MIGRAINE
     Dosage: 25 MG, DAILY USE AT ONSET OF MIGRAINE
  7. SYMBICORT [Concomitant]
     Active Substance: BUDESONIDE\FORMOTEROL FUMARATE DIHYDRATE
     Dosage: 1 DF OF 400/12MCD, 2X/DAY
  8. LYRICA [Suspect]
     Active Substance: PREGABALIN
     Indication: MOVEMENT DISORDER
     Dosage: 25 MG, DAILY AT NIGHT
     Dates: start: 20140818
  9. ZOLMITRIPTAN. [Concomitant]
     Active Substance: ZOLMITRIPTAN
     Dosage: INITIALLY 2.5MG; MAY ADMIN 2ND 2.5MG DOSE AFTER } 2 HOURS IF SYMPTOMS PERSIST;
  10. LYRICA [Suspect]
     Active Substance: PREGABALIN
     Indication: CHEST PAIN
     Dosage: 25 MG, 2X/DAY
  11. MAGNESIUM OROTATE [Concomitant]
     Dosage: 400 MG, UNK

REACTIONS (8)
  - Prostate cancer [Unknown]
  - Pre-existing condition improved [Unknown]
  - Product use issue [Unknown]
  - Weight increased [Unknown]
  - Increased appetite [Unknown]
  - Depressed mood [Unknown]
  - Therapeutic response unexpected [Unknown]
  - Heart rate increased [Unknown]

NARRATIVE: CASE EVENT DATE: 20140818
